FAERS Safety Report 5243634-7 (Version None)
Quarter: 2007Q1

REPORT INFORMATION
  Report Type: 
  Country: None (occurrence: None)
  Receive Date: 20070222
  Receipt Date: 20070215
  Transmission Date: 20070707
  Serious: Yes (Life-Threatening)
  Sender: FDA-Public Use
  Company Number: 2007AP00454

PATIENT
  Age: 747 Month
  Sex: Male

DRUGS (6)
  1. NAROPIN GENERAL [Suspect]
     Indication: LOCAL ANAESTHESIA
     Dosage: LOADING DOSE 30ML
     Route: 053
     Dates: start: 20061215, end: 20061215
  2. NAROPIN GENERAL [Suspect]
     Dosage: MAINTENANCE DOSE 6ML/HR
     Route: 053
     Dates: start: 20061215, end: 20061215
  3. NAROPIN GENERAL [Suspect]
     Dosage: MAINTENANCE DOSE 10ML/HR
     Route: 053
     Dates: start: 20061215, end: 20061215
  4. METARAMINOL [Concomitant]
     Indication: PROCEDURAL HYPOTENSION
     Dosage: 2-4 MG/HR
     Dates: start: 20061215, end: 20061215
  5. ANTIBIOTIC [Concomitant]
  6. HEPARIN [Concomitant]

REACTIONS (2)
  - HYPOTENSION [None]
  - MYOCARDIAL ISCHAEMIA [None]
